FAERS Safety Report 8958831 (Version 1)
Quarter: 2012Q4

REPORT INFORMATION
  Report Type: 
  Country: US (occurrence: US)
  Receive Date: 20121211
  Receipt Date: 20121211
  Transmission Date: 20130627
  Serious: No
  Sender: FDA-Public Use
  Company Number: US-ASTRAZENECA-2012SE87503

PATIENT
  Age: 62 Year
  Sex: Female
  Weight: 115.2 kg

DRUGS (12)
  1. SYMBICORT PMDI [Suspect]
     Indication: ASTHMA
     Dosage: 160/4.5, BID
     Route: 055
     Dates: start: 201203
  2. SYMBICORT PMDI [Suspect]
     Indication: ASTHMA
     Dosage: 80/4.5, BID
     Route: 055
     Dates: start: 201203
  3. SYMBICORT PMDI [Suspect]
     Indication: ASTHMA
     Dosage: 3 DOSES WHENEVER REQUIRED
     Route: 055
  4. LISINOPRIL [Suspect]
     Indication: BLOOD PRESSURE ABNORMAL
     Dosage: DAILY
     Route: 048
  5. SYNTHROID [Concomitant]
     Indication: THYROID HORMONE REPLACEMENT THERAPY
     Route: 048
  6. SUDAFED [Concomitant]
     Indication: MULTIPLE ALLERGIES
     Route: 048
  7. ALLEGRA [Concomitant]
     Indication: MULTIPLE ALLERGIES
     Route: 048
  8. VITAMIN D3 [Concomitant]
     Indication: ARTHRITIS
     Route: 048
  9. VITAMIN B12 [Concomitant]
     Route: 048
  10. CALCIUM [Concomitant]
     Indication: ARTHRITIS
     Route: 048
  11. VITAMIN K [Concomitant]
     Indication: BONE DISORDER
     Route: 048
  12. VITAMIN K [Concomitant]
     Indication: ANGIOPATHY
     Route: 048

REACTIONS (7)
  - Blood thyroid stimulating hormone abnormal [Unknown]
  - Lung disorder [Unknown]
  - Gait disturbance [Unknown]
  - Arthralgia [Unknown]
  - Oropharyngeal pain [Unknown]
  - Drug dose omission [Unknown]
  - Off label use [Unknown]
